FAERS Safety Report 17916945 (Version 1)
Quarter: 2020Q2

REPORT INFORMATION
  Report Type: Spontaneous
  Country: US (occurrence: US)
  Receive Date: 20200619
  Receipt Date: 20200619
  Transmission Date: 20200714
  Serious: Yes (Death)
  Sender: FDA-Public Use
  Company Number: None

PATIENT
  Age: 71 Year
  Sex: Male
  Weight: 70.65 kg

DRUGS (8)
  1. TUMERIC [Concomitant]
     Active Substance: HERBALS\TURMERIC
  2. XGEVA [Suspect]
     Active Substance: DENOSUMAB
     Indication: LUNG NEOPLASM MALIGNANT
     Dates: start: 20200210, end: 20200619
  3. XGEVA [Suspect]
     Active Substance: DENOSUMAB
     Indication: BRONCHIAL CARCINOMA
     Dates: start: 20200210, end: 20200619
  4. KEYTRUDA [Suspect]
     Active Substance: PEMBROLIZUMAB
     Indication: LUNG NEOPLASM MALIGNANT
     Dates: start: 20200102, end: 20200619
  5. SIMVASTATIN. [Concomitant]
     Active Substance: SIMVASTATIN
  6. TUMS [Concomitant]
     Active Substance: CALCIUM CARBONATE
  7. ALEVE [Concomitant]
     Active Substance: NAPROXEN SODIUM
  8. ZYRTEC [Concomitant]
     Active Substance: CETIRIZINE HYDROCHLORIDE

REACTIONS (1)
  - Death [None]

NARRATIVE: CASE EVENT DATE: 20200619
